FAERS Safety Report 9798748 (Version 1)
Quarter: 2014Q1

REPORT INFORMATION
  Report Type: Spontaneous
  Country: US (occurrence: US)
  Receive Date: 20140106
  Receipt Date: 20140106
  Transmission Date: 20141002
  Serious: No
  Sender: FDA-Public Use
  Company Number: US-GILEAD-2010-0030115

PATIENT
  Age: 85 Year
  Sex: Female
  Weight: 68.04 kg

DRUGS (11)
  1. LETAIRIS [Suspect]
     Indication: PULMONARY ARTERIAL HYPERTENSION
     Route: 048
     Dates: start: 20080312
  2. MUCINEX [Concomitant]
  3. HYDROCHLOROTHIAZIDE [Concomitant]
  4. PROTONIX [Concomitant]
  5. NORVASC [Concomitant]
  6. SYNTHROID [Concomitant]
  7. LOVASTATIN [Concomitant]
  8. NYSTATIN [Concomitant]
  9. FLUOCINOLONE [Concomitant]
  10. TOPROL XL [Concomitant]
  11. ASPIRIN [Concomitant]

REACTIONS (1)
  - Dizziness [Unknown]
